FAERS Safety Report 12853115 (Version 1)
Quarter: 2016Q4

REPORT INFORMATION
  Report Type: Spontaneous
  Country: US (occurrence: US)
  Receive Date: 20161017
  Receipt Date: 20161017
  Transmission Date: 20170207
  Serious: No
  Sender: FDA-Public Use
  Company Number: US-JAZZ-2016-US-014262

PATIENT
  Sex: Male

DRUGS (51)
  1. SINGULAIR [Concomitant]
     Active Substance: MONTELUKAST SODIUM
  2. LYRICA [Concomitant]
     Active Substance: PREGABALIN
  3. DULOXETINE. [Concomitant]
     Active Substance: DULOXETINE
  4. ALLERGY [Concomitant]
     Active Substance: UNSPECIFIED INGREDIENT
  5. TAMSULOSIN HCL [Concomitant]
     Active Substance: TAMSULOSIN
  6. SYMBICORT [Concomitant]
     Active Substance: BUDESONIDE\FORMOTEROL FUMARATE DIHYDRATE
  7. VENTOLIN [Concomitant]
     Active Substance: ALBUTEROL SULFATE
  8. AMLODIPINE [Concomitant]
     Active Substance: AMLODIPINE BESYLATE
  9. MIRALAX [Concomitant]
     Active Substance: POLYETHYLENE GLYCOL 3350
  10. DURAMORPH [Concomitant]
     Active Substance: MORPHINE SULFATE
  11. LISINOPRIL. [Concomitant]
     Active Substance: LISINOPRIL
  12. XYREM [Suspect]
     Active Substance: SODIUM OXYBATE
     Indication: NARCOLEPSY
     Dosage: 4.5 G, BID
     Route: 048
     Dates: start: 200506, end: 200509
  13. VIAGRA [Concomitant]
     Active Substance: SILDENAFIL CITRATE
  14. ZINC [Concomitant]
     Active Substance: ZINC\ZINC CHLORIDE
  15. LEVOTHYROXINE SODIUM. [Concomitant]
     Active Substance: LEVOTHYROXINE SODIUM
  16. MAGNESIUM OXIDE. [Concomitant]
     Active Substance: MAGNESIUM OXIDE
  17. FLUCONAZOLE. [Concomitant]
     Active Substance: FLUCONAZOLE
  18. POTASSIUM [Concomitant]
     Active Substance: POTASSIUM
  19. ARNUITY ELLIPTA [Concomitant]
     Active Substance: FLUTICASONE FUROATE
  20. MULTIVITAMINS [Concomitant]
     Active Substance: VITAMINS
  21. FLUTICASONE PROPIONATE. [Concomitant]
     Active Substance: FLUTICASONE PROPIONATE
  22. CIPROFLOXACIN HYDROCHLORIDE. [Concomitant]
     Active Substance: CIPROFLOXACIN HYDROCHLORIDE
  23. OXCARBAZEPINE. [Concomitant]
     Active Substance: OXCARBAZEPINE
  24. HYDROMORPHONE HCL [Concomitant]
     Active Substance: HYDROMORPHONE HYDROCHLORIDE
  25. AZELASTINE [Concomitant]
     Active Substance: AZELASTINE
  26. FUROSEMIDE. [Concomitant]
     Active Substance: FUROSEMIDE
  27. ONDANSETRON [Concomitant]
     Active Substance: ONDANSETRON
  28. TESTOSTERONE. [Concomitant]
     Active Substance: TESTOSTERONE
  29. XYREM [Suspect]
     Active Substance: SODIUM OXYBATE
     Dosage: 4.5 G, BID
     Route: 048
     Dates: start: 201202, end: 201301
  30. OMEPRAZOLE. [Concomitant]
     Active Substance: OMEPRAZOLE
  31. CYANOCOBALAMIN. [Concomitant]
     Active Substance: CYANOCOBALAMIN
  32. BUPROPION HCL [Concomitant]
     Active Substance: BUPROPION HYDROCHLORIDE
  33. GLUCOSAMINE [Concomitant]
     Active Substance: GLUCOSAMINE
  34. COENZYME Q10 [Concomitant]
     Active Substance: UBIDECARENONE
  35. PANTOPRAZOLE SODIUM. [Concomitant]
     Active Substance: PANTOPRAZOLE SODIUM
  36. DRONABINOL. [Concomitant]
     Active Substance: DRONABINOL
  37. MORPHINE SULF [Concomitant]
     Active Substance: MORPHINE SULFATE
  38. LIDODERM [Concomitant]
     Active Substance: LIDOCAINE
  39. XYREM [Suspect]
     Active Substance: SODIUM OXYBATE
     Dosage: DOSE ADJUSTMENT
     Route: 048
     Dates: start: 200509, end: 200702
  40. XYREM [Suspect]
     Active Substance: SODIUM OXYBATE
     Dosage: 4.5 G, BID
     Route: 048
     Dates: start: 200702, end: 2008
  41. TEA [Concomitant]
     Active Substance: TEA LEAF
  42. FINASTERIDE. [Concomitant]
     Active Substance: FINASTERIDE
  43. XYREM [Suspect]
     Active Substance: SODIUM OXYBATE
     Dosage: 3 G, TID
     Route: 048
     Dates: start: 201301
  44. HYDROCORTISONE. [Concomitant]
     Active Substance: HYDROCORTISONE
  45. LEVOFLOXACIN. [Concomitant]
     Active Substance: LEVOFLOXACIN
  46. BACLOFEN. [Concomitant]
     Active Substance: BACLOFEN
  47. OXYCODONE [Concomitant]
     Active Substance: OXYCODONE
  48. IRON [Concomitant]
     Active Substance: IRON
  49. ULTIMATECARE ONE NF [Concomitant]
     Active Substance: .ALPHA.-TOCOPHEROL ACETATE, DL-\BIOTIN\CALCIUM\CALCIUM ASCORBATE\CALCIUM THREONATE\CHOLECALCIFEROL\DOCONEXENT\DOCUSATE SODIUM\FERROUS ASPARTO GLYCINATE\FOLIC ACID\ICOSAPENT\IODINE\IRON\LINOLENIC ACID\MAGNESIUM OXIDE\NIACINAMIDE\OMEGA-3 FATTY ACIDS\PYRIDOXINE HYDROCHLORIDE\RIBOFLAVIN\ZINC OXIDE
  50. ALPRAZOLAM. [Concomitant]
     Active Substance: ALPRAZOLAM
  51. COENZYME Q10 [Concomitant]
     Active Substance: UBIDECARENONE

REACTIONS (2)
  - Renal disorder [Recovering/Resolving]
  - Night sweats [Not Recovered/Not Resolved]
